FAERS Safety Report 7039943-1 (Version None)
Quarter: 2010Q4

REPORT INFORMATION
  Report Type: 
  Country: None (occurrence: None)
  Receive Date: 20101012
  Receipt Date: 20100930
  Transmission Date: 20110411
  Serious: Yes (Hospitalization, Other)
  Sender: FDA-Public Use
  Company Number: ES-ELI_LILLY_AND_COMPANY-ES201010000340

PATIENT
  Sex: Female

DRUGS (11)
  1. FORTEO [Suspect]
     Indication: OSTEOPOROSIS
     Dosage: 20 UG, DAILY (1/D)
     Route: 058
     Dates: start: 20100501
  2. LORAZEPAM [Concomitant]
     Dosage: UNK, 3/D
     Route: 048
  3. ESERTIA [Concomitant]
     Indication: DEPRESSION
     Dosage: UNK, DAILY (1/D)
     Route: 048
  4. ACFOL [Concomitant]
     Dosage: UNK, DAILY (1/D)
     Route: 048
  5. FUROSEMIDE [Concomitant]
     Dosage: UNK, DAILY (1/D)
     Route: 048
  6. ZALDIAR [Concomitant]
     Dosage: UNK, 2/D
     Route: 048
  7. TORECAN [Concomitant]
     Indication: DIZZINESS
     Dosage: UNK, DAILY (1/D)
     Route: 048
  8. CEPRANDAL [Concomitant]
     Indication: PROPHYLAXIS
     Dosage: UNK, DAILY (1/D)
     Route: 048
  9. NATECAL [Concomitant]
     Indication: OSTEOPOROSIS
     Dosage: UNK, DAILY (1/D)
     Route: 048
  10. MIRTAZAPINE [Concomitant]
     Dosage: UNK, DAILY (1/D)
     Route: 048
  11. SALURIC [Concomitant]
     Route: 048

REACTIONS (3)
  - GAIT DISTURBANCE [None]
  - GASTROINTESTINAL INFLAMMATION [None]
  - MEMORY IMPAIRMENT [None]
